FAERS Safety Report 24715352 (Version 1)
Quarter: 2024Q4

REPORT INFORMATION
  Report Type: Spontaneous
  Country: JP (occurrence: JP)
  Receive Date: 20241210
  Receipt Date: 20241210
  Transmission Date: 20250115
  Serious: Yes (Other)
  Sender: GLAND PHARMA LTD
  Company Number: JP-GLANDPHARMA-JP-2024GLNLIT01235

PATIENT
  Age: 53 Year
  Sex: Male

DRUGS (2)
  1. ARSENIC TRIOXIDE [Suspect]
     Active Substance: ARSENIC TRIOXIDE
     Indication: Acute promyelocytic leukaemia
     Dosage: TOTAL OF 4 CYCLES
     Route: 065
  2. TRETINOIN [Concomitant]
     Active Substance: TRETINOIN
     Dosage: TOTAL OF 4 CYCLES
     Route: 065

REACTIONS (1)
  - Pericarditis [Recovered/Resolved]
